FAERS Safety Report 25777174 (Version 2)
Quarter: 2025Q3

REPORT INFORMATION
  Report Type: Spontaneous
  Country: US (occurrence: US)
  Receive Date: 20250909
  Receipt Date: 20250913
  Transmission Date: 20251020
  Serious: Yes (Other)
  Sender: AUROBINDO
  Company Number: US-AUROBINDO-AUR-APL-2025-044846

PATIENT
  Age: 81 Year
  Sex: Male

DRUGS (5)
  1. MITOMYCIN [Suspect]
     Active Substance: MITOMYCIN
     Indication: Open angle glaucoma
     Route: 065
  2. DIFLUPREDNATE [Concomitant]
     Active Substance: DIFLUPREDNATE
     Indication: Product used for unknown indication
     Route: 061
  3. DIFLUPREDNATE [Concomitant]
     Active Substance: DIFLUPREDNATE
     Route: 065
  4. PREDNISOLONE [Concomitant]
     Active Substance: PREDNISOLONE
     Indication: Product used for unknown indication
     Route: 061
  5. MOXIFLOXACIN [Concomitant]
     Active Substance: MOXIFLOXACIN
     Indication: Antibiotic therapy
     Route: 065

REACTIONS (3)
  - Scleromalacia [Unknown]
  - Endophthalmitis [Unknown]
  - Infection [Unknown]
